FAERS Safety Report 18512027 (Version 2)
Quarter: 2021Q1

REPORT INFORMATION
  Report Type: Spontaneous
  Country: US (occurrence: DE)
  Receive Date: 20201117
  Receipt Date: 20210111
  Transmission Date: 20210419
  Serious: Yes (Other)
  Sender: FDA-Public Use
  Company Number: US-KYOWAKIRIN-2020BKK018921

PATIENT

DRUGS (3)
  1. CRYSVITA [Suspect]
     Active Substance: BUROSUMAB-TWZA
     Indication: HEREDITARY HYPOPHOSPHATAEMIC RICKETS
     Dosage: 10 MG, 1X/2 WEEKS
     Route: 058
     Dates: start: 20190404
  2. CRYSVITA [Suspect]
     Active Substance: BUROSUMAB-TWZA
     Dosage: 12 MG, 1X/2 WEEKS
     Route: 058
  3. VIGANTOLETTEN [Concomitant]
     Active Substance: CHOLECALCIFEROL
     Indication: HEREDITARY HYPOPHOSPHATAEMIC RICKETS
     Dosage: 1000 IU
     Route: 065

REACTIONS (6)
  - Osteitis [Recovering/Resolving]
  - Arthritis [Recovering/Resolving]
  - Incorrect dose administered [Unknown]
  - Tendonitis [Recovering/Resolving]
  - Osteomyelitis [Recovering/Resolving]
  - Bone marrow oedema [Recovering/Resolving]

NARRATIVE: CASE EVENT DATE: 20201110
